FAERS Safety Report 16726086 (Version 2)
Quarter: 2019Q4

REPORT INFORMATION
  Report Type: Report from Study
  Country: CA (occurrence: CA)
  Receive Date: 20190821
  Receipt Date: 20191015
  Transmission Date: 20200122
  Serious: No
  Sender: FDA-Public Use
  Company Number: CA-INDIVIOR US-INDV-121177-2019

PATIENT
  Age: 31 Year

DRUGS (2)
  1. XYLOCAINE [Concomitant]
     Active Substance: LIDOCAINE HYDROCHLORIDE
     Indication: PROPHYLAXIS
     Dosage: 0.5 CC
     Route: 058
     Dates: start: 20190724, end: 20190724
  2. SUBLOCADE [Suspect]
     Active Substance: BUPRENORPHINE
     Indication: PRODUCT USED FOR UNKNOWN INDICATION
     Dosage: 300 MILLIGRAM, QMO (2 INJECTIONS)
     Route: 058
     Dates: start: 20190627, end: 20190812

REACTIONS (7)
  - Injection site ulcer [Unknown]
  - Drug withdrawal syndrome [Unknown]
  - Drug interaction [Recovered/Resolved]
  - Wrong technique in product usage process [Recovered/Resolved]
  - Injection site extravasation [Recovered/Resolved]
  - Drug delivery system removal [Recovered/Resolved]
  - Injection site abscess [Unknown]

NARRATIVE: CASE EVENT DATE: 201907
